FAERS Safety Report 8337155-2 (Version None)
Quarter: 2012Q2

REPORT INFORMATION
  Report Type: 
  Country: None (occurrence: None)
  Receive Date: 20120501
  Receipt Date: 20120416
  Transmission Date: 20120825
  Serious: Yes (Hospitalization)
  Sender: FDA-Public Use
  Company Number: FK201201111

PATIENT
  Age: 54 Year
  Sex: Male

DRUGS (1)
  1. CLONIDINE HYDROCHLORIDE [Suspect]
     Indication: BACK PAIN
     Dosage: 0.05 ML, 43 UG/DAY DAILY FLOW RATE OF 0.05 ML, INTRATHECAL)
     Route: 037

REACTIONS (5)
  - HYPERTENSION [None]
  - DEVICE LEAKAGE [None]
  - PROCEDURAL COMPLICATION [None]
  - ALTERED STATE OF CONSCIOUSNESS [None]
  - OVERDOSE [None]
